FAERS Safety Report 21094909 (Version 1)
Quarter: 2022Q3

REPORT INFORMATION
  Report Type: Spontaneous
  Country: US (occurrence: None)
  Receive Date: 20220715
  Receipt Date: 20220715
  Transmission Date: 20221026
  Serious: Yes (Other)
  Sender: FDA-Public Use
  Company Number: None

PATIENT
  Age: 71 Year
  Sex: Male
  Weight: 104.85 kg

DRUGS (18)
  1. ENOXAPARIN SODIUM [Suspect]
     Active Substance: ENOXAPARIN SODIUM
     Indication: Thrombosis prophylaxis
     Dosage: FREQUENCY : TWICE A DAY;?
     Route: 058
     Dates: start: 20220613, end: 20220624
  2. ACETAMINOPHEN [Concomitant]
     Active Substance: ACETAMINOPHEN
  3. ALBUTEROL SULFATE [Concomitant]
     Active Substance: ALBUTEROL SULFATE
  4. ASPIRIN [Concomitant]
     Active Substance: ASPIRIN
  5. budesonide-formoterol fumarate [Concomitant]
  6. EZETIMIBE [Concomitant]
     Active Substance: EZETIMIBE
  7. SULFAMETHOXAZOLE\TRIMETHOPRIM [Concomitant]
     Active Substance: SULFAMETHOXAZOLE\TRIMETHOPRIM
  8. PEPCID [Concomitant]
     Active Substance: FAMOTIDINE
  9. HYDROCHLOROTHIAZIDE [Concomitant]
     Active Substance: HYDROCHLOROTHIAZIDE
  10. VITAMINS [Concomitant]
     Active Substance: VITAMINS
  11. OMEGA-3 ACIDS [Concomitant]
     Active Substance: OMEGA-3 FATTY ACIDS
  12. NEBIVOLOL [Concomitant]
     Active Substance: NEBIVOLOL
  13. PROTONIX [Concomitant]
     Active Substance: PANTOPRAZOLE SODIUM
  14. CRESTOR [Concomitant]
     Active Substance: ROSUVASTATIN CALCIUM
  15. hydrocortisone 2.5% cream [Concomitant]
  16. Miralex [Concomitant]
  17. VITAMIN D NOS [Concomitant]
     Active Substance: VITAMIN D NOS
  18. PROBIOTICS NOS [Concomitant]
     Active Substance: PROBIOTICS NOS

REACTIONS (7)
  - Pruritus [None]
  - Rash [None]
  - Blister [None]
  - Pruritus [None]
  - Rash [None]
  - Syncope [None]
  - Pain [None]

NARRATIVE: CASE EVENT DATE: 20220624
